FAERS Safety Report 4378282-4 (Version None)
Quarter: 2004Q2

REPORT INFORMATION
  Report Type: 
  Country: None (occurrence: None)
  Receive Date: 20040609
  Receipt Date: 20040528
  Transmission Date: 20050107
  Serious: Yes (Other)
  Sender: FDA-Public Use
  Company Number: 206148

PATIENT
  Age: 6 Year
  Sex: Female

DRUGS (2)
  1. NUTROPIN AQ [Suspect]
     Indication: TURNER'S SYNDROME
     Dosage: 1 MG, 6/WEEK, SUBCUTANEOUS : 1.6MG, 6/WEEK, SUBCUTANEOUS : 1.2 MG, 6/WEEK, SUBCUTANEOUS
     Route: 058
     Dates: start: 20030201
  2. NUTROPIN AQ [Suspect]
     Indication: TURNER'S SYNDROME
     Dosage: 1 MG, 6/WEEK, SUBCUTANEOUS : 1.6MG, 6/WEEK, SUBCUTANEOUS : 1.2 MG, 6/WEEK, SUBCUTANEOUS
     Route: 058
     Dates: start: 20040413

REACTIONS (1)
  - VITH NERVE PARALYSIS [None]
